FAERS Safety Report 6165054-3 (Version None)
Quarter: 2009Q2

REPORT INFORMATION
  Report Type: 
  Country: None (occurrence: None)
  Receive Date: 20090423
  Receipt Date: 20090312
  Transmission Date: 20091009
  Serious: Yes (Life-Threatening, Disabling, Other)
  Sender: FDA-Public Use
  Company Number: AU-BAYER-AU-SHR-03-012330

PATIENT
  Age: 48 Year
  Sex: Male
  Weight: 80 kg

DRUGS (12)
  1. REFLUDAN [Suspect]
     Indication: DRUG USE FOR UNKNOWN INDICATION
     Dosage: 22 MG, 1 DOSE
     Route: 041
     Dates: start: 20030731, end: 20030731
  2. REFLUDAN [Suspect]
     Route: 041
     Dates: start: 20030731
  3. AMICAR [Concomitant]
     Indication: DRUG USE FOR UNKNOWN INDICATION
     Dosage: 5 MG, UNK
     Dates: start: 20030801, end: 20030801
  4. KARVEZIDE [Concomitant]
     Indication: DRUG USE FOR UNKNOWN INDICATION
     Route: 065
  5. LIPITOR [Concomitant]
     Indication: DRUG USE FOR UNKNOWN INDICATION
     Route: 065
  6. ASPIRIN [Concomitant]
     Indication: DRUG USE FOR UNKNOWN INDICATION
     Route: 065
  7. PROTAPHANE [INSULIN HUMAN INJECTION, ISOPHANE] [Concomitant]
     Indication: DRUG USE FOR UNKNOWN INDICATION
     Route: 065
  8. ACTRAPID [Concomitant]
     Indication: DRUG USE FOR UNKNOWN INDICATION
     Route: 065
  9. MAGMIN [Concomitant]
     Indication: DRUG USE FOR UNKNOWN INDICATION
     Route: 065
  10. COENZYME Q10 [Concomitant]
     Indication: DRUG USE FOR UNKNOWN INDICATION
     Route: 065
  11. RANITIDINE [Concomitant]
     Indication: ANAPHYLACTIC REACTION
  12. ADRENALINE [Concomitant]
     Indication: ANAPHYLACTIC REACTION

REACTIONS (9)
  - ABDOMINAL DISTENSION [None]
  - ANAPHYLACTIC REACTION [None]
  - BLINDNESS [None]
  - DERMATITIS BULLOUS [None]
  - FLUID RETENTION [None]
  - HYPOTENSION [None]
  - OEDEMA PERIPHERAL [None]
  - OPTIC ISCHAEMIC NEUROPATHY [None]
  - SKIN EXFOLIATION [None]
